FAERS Safety Report 6853956-1 (Version None)
Quarter: 2010Q3

REPORT INFORMATION
  Report Type: 
  Country: None (occurrence: None)
  Receive Date: 20100717
  Receipt Date: 20080201
  Transmission Date: 20110219
  Serious: No
  Sender: FDA-Public Use
  Company Number: US-PFIZER INC-2007104097

PATIENT
  Sex: Female
  Weight: 74.8 kg

DRUGS (3)
  1. CHANTIX [Suspect]
     Indication: SMOKING CESSATION THERAPY
     Route: 048
     Dates: start: 20071026
  2. EFFEXOR [Concomitant]
     Indication: DEPRESSION
  3. XANAX [Concomitant]
     Indication: PANIC ATTACK

REACTIONS (5)
  - DYSGEUSIA [None]
  - FEELING ABNORMAL [None]
  - MALAISE [None]
  - NAUSEA [None]
  - WEIGHT INCREASED [None]
